FAERS Safety Report 5501969-4 (Version None)
Quarter: 2007Q4

REPORT INFORMATION
  Report Type: 
  Country: None (occurrence: None)
  Receive Date: 20071030
  Receipt Date: 20071026
  Transmission Date: 20080405
  Serious: Yes (Death)
  Sender: FDA-Public Use
  Company Number: US-GILEAD-2007-0013540

PATIENT
  Sex: Female
  Weight: 59.02 kg

DRUGS (13)
  1. LETAIRIS [Suspect]
     Indication: PULMONARY HYPERTENSION
     Route: 048
     Dates: start: 20070810, end: 20070920
  2. PROTONIX [Concomitant]
     Route: 048
     Dates: end: 20070920
  3. ALDACTONE [Concomitant]
     Route: 048
     Dates: end: 20070920
  4. LEVAQUIN [Concomitant]
     Route: 048
     Dates: end: 20070920
  5. PREDNISONE [Concomitant]
     Route: 048
     Dates: end: 20070920
  6. LYRICA [Concomitant]
     Route: 048
     Dates: end: 20070920
  7. RIFAMPIN [Concomitant]
     Route: 048
     Dates: end: 20070920
  8. METOPROLOL [Concomitant]
     Route: 048
     Dates: end: 20070920
  9. FERROUS SULFATE TAB [Concomitant]
     Route: 048
     Dates: end: 20070920
  10. PROZAC [Concomitant]
     Route: 048
     Dates: end: 20070920
  11. MAGNESIUM SULFATE [Concomitant]
     Route: 048
     Dates: end: 20070920
  12. LASIX [Concomitant]
     Route: 065
     Dates: end: 20070920
  13. VANCOMYCIN [Concomitant]
     Route: 048
     Dates: end: 20070920

REACTIONS (1)
  - DEATH [None]
